FAERS Safety Report 4648028-0 (Version None)
Quarter: 2005Q2

REPORT INFORMATION
  Report Type: 
  Country: None (occurrence: None)
  Receive Date: 20050428
  Receipt Date: 20050418
  Transmission Date: 20051028
  Serious: Yes (Hospitalization)
  Sender: FDA-Public Use
  Company Number: FR-MERCK-0504FRA00051

PATIENT
  Age: 82 Year
  Sex: Male

DRUGS (6)
  1. ZOCOR [Suspect]
     Route: 048
     Dates: start: 19980101, end: 20050213
  2. ASPIRIN LYSINE [Concomitant]
     Route: 048
     Dates: start: 19980101
  3. AMLODIPINE BESYLATE [Concomitant]
     Route: 048
     Dates: start: 19980101
  4. BISOPROLOL FUMARATE [Concomitant]
     Route: 048
     Dates: start: 19980101
  5. ISOSORBIDE MONONITRATE [Concomitant]
     Route: 048
     Dates: start: 19980101
  6. TRANDOLAPRIL [Suspect]
     Route: 048
     Dates: start: 19980101, end: 20050129

REACTIONS (3)
  - PERICARDIAL EFFUSION [None]
  - PERICARDITIS [None]
  - PLEURAL EFFUSION [None]
